FAERS Safety Report 25710603 (Version 1)
Quarter: 2025Q3

REPORT INFORMATION
  Report Type: Spontaneous
  Country: US (occurrence: US)
  Receive Date: 20250821
  Receipt Date: 20250821
  Transmission Date: 20251021
  Serious: No
  Sender: ODIN PHARMACEUTICALS
  Company Number: USA--2025-US-000109

PATIENT

DRUGS (1)
  1. DORZOLAMIDE HYDROCHLORIDE\TIMOLOL MALEATE [Suspect]
     Active Substance: DORZOLAMIDE HYDROCHLORIDE\TIMOLOL MALEATE
     Dates: start: 20241001

REACTIONS (1)
  - Rash [Unknown]

NARRATIVE: CASE EVENT DATE: 20241001
